FAERS Safety Report 23091460 (Version 1)
Quarter: 2023Q4

REPORT INFORMATION
  Report Type: Spontaneous
  Country: CA (occurrence: CA)
  Receive Date: 20231020
  Receipt Date: 20231020
  Transmission Date: 20240110
  Serious: Yes (Other)
  Sender: FDA-Public Use
  Company Number: CA-PFIZER INC-202300334400

PATIENT
  Age: 51 Year
  Sex: Female

DRUGS (8)
  1. RUXIENCE [Suspect]
     Active Substance: RITUXIMAB-PVVR
     Indication: Granulomatosis with polyangiitis
     Dosage: 1 DF, 700 MG WEEK X 4
     Route: 042
     Dates: start: 20210915, end: 20211006
  2. RUXIENCE [Suspect]
     Active Substance: RITUXIMAB-PVVR
     Dosage: 700 MG, EVERY WEEK FOR 4 WEEKS
     Route: 042
     Dates: start: 20220308, end: 20220331
  3. RUXIENCE [Suspect]
     Active Substance: RITUXIMAB-PVVR
     Dosage: 700 MG, EVERY WEEK FOR 4 WEEKS, REPEAT EVERY 6 MONTHS
     Route: 042
     Dates: start: 20221004, end: 20221025
  4. RUXIENCE [Suspect]
     Active Substance: RITUXIMAB-PVVR
     Dosage: 716.25 MG (1 DF), EVERY 4 WEEK
     Route: 042
     Dates: start: 20230411, end: 20230502
  5. RUXIENCE [Suspect]
     Active Substance: RITUXIMAB-PVVR
     Dosage: 700 MG, WEEKLY, FOR 4 WEEKS
     Route: 042
     Dates: start: 20231010
  6. RUXIENCE [Suspect]
     Active Substance: RITUXIMAB-PVVR
     Dosage: 700 MG, WEEKLY, FOR 4 WEEKS
     Route: 042
     Dates: start: 20231010
  7. RUXIENCE [Suspect]
     Active Substance: RITUXIMAB-PVVR
     Dosage: 716.25 MG, 1 WEEK
     Route: 042
     Dates: start: 20231017
  8. ENTYVIO [Concomitant]
     Active Substance: VEDOLIZUMAB
     Indication: Crohn^s disease
     Dosage: UNK

REACTIONS (2)
  - Pyrexia [Recovered/Resolved]
  - Oral pain [Unknown]

NARRATIVE: CASE EVENT DATE: 20231015
